FAERS Safety Report 8196145-3 (Version None)
Quarter: 2012Q1

REPORT INFORMATION
  Report Type: 
  Country: None (occurrence: None)
  Receive Date: 20120223
  Receipt Date: 20111201
  Transmission Date: 20120608
  Serious: Yes (Hospitalization)
  Sender: FDA-Public Use
  Company Number: WAES 1112USA00412

PATIENT
  Age: 80 Year
  Sex: Female

DRUGS (2)
  1. INSULIN [Concomitant]
  2. ZOCOR [Suspect]
     Indication: PRODUCT USED FOR UNKNOWN INDICATION
     Dosage: 10 MG/UNK/PO
     Route: 048
     Dates: start: 20080101

REACTIONS (1)
  - RHABDOMYOLYSIS [None]
